FAERS Safety Report 25848220 (Version 1)
Quarter: 2025Q3

REPORT INFORMATION
  Report Type: Spontaneous
  Country: US (occurrence: None)
  Receive Date: 20250925
  Receipt Date: 20250925
  Transmission Date: 20251020
  Serious: Yes (Death)
  Sender: FDA-CTU
  Company Number: None

PATIENT
  Age: 80 Year
  Sex: Female

DRUGS (11)
  1. POMALYST [Suspect]
     Active Substance: POMALIDOMIDE
     Indication: Plasma cell myeloma
  2. HYDRALAZINE 50MG TABLETS(ORANGE) [Concomitant]
  3. CITRUCEL SF LAXATIVE POWDER ORANGE [Concomitant]
  4. CLOPIDOGREL [Concomitant]
     Active Substance: CLOPIDOGREL BISULFATE
  5. FLONASE SENSIMIST 27.5MCG NA SP-60 [Concomitant]
  6. GABAPENTIN 600MG TABLETS [Concomitant]
  7. LEVOTHYROXINE 0.088MG (88MCG) TAB [Concomitant]
  8. PRAVASTATIN 80MG TABLETS [Concomitant]
  9. PROBIOTIC DAILY CAPSULES 60^S [Concomitant]
  10. ASPIRIN [Concomitant]
     Active Substance: ASPIRIN
  11. ASPIRIN CHILD CHEW ORANGE TB 3X36 [Concomitant]

REACTIONS (1)
  - Death [None]
